FAERS Safety Report 24324140 (Version 2)
Quarter: 2024Q4

REPORT INFORMATION
  Report Type: Spontaneous
  Country: US (occurrence: US)
  Receive Date: 20240916
  Receipt Date: 20241007
  Transmission Date: 20250115
  Serious: No
  Sender: PFIZER
  Company Number: US-PFIZER INC-202400255161

PATIENT
  Age: 54 Year
  Sex: Female
  Weight: 65.76 kg

DRUGS (10)
  1. PAXLOVID [Interacting]
     Active Substance: NIRMATRELVIR\RITONAVIR
     Indication: COVID-19 treatment
     Dosage: [NIRMATRELVIR] 300 MG/ [RITONAVIR] 100 MG, 2X/DAY
     Route: 048
     Dates: start: 20240802, end: 20240807
  2. DUPIXENT [Interacting]
     Active Substance: DUPILUMAB
     Indication: Asthma
     Dosage: 300 MG, SINGLE
     Dates: start: 20240808, end: 20240808
  3. DUPIXENT [Interacting]
     Active Substance: DUPILUMAB
     Dosage: 300 MG, SINGLE
     Dates: start: 20240822, end: 20240822
  4. MOMETASONE [Concomitant]
     Active Substance: MOMETASONE
     Dosage: 2 SPRAYS BID (50 MCG/SPRAY)
  5. DULERA [Concomitant]
     Active Substance: FORMOTEROL FUMARATE DIHYDRATE\MOMETASONE FUROATE
     Indication: Asthma
     Dosage: 2 PUFFS BID (200 MCG/5MCG PER ACTUATION)
  6. AZELASTINE [Concomitant]
     Active Substance: AZELASTINE
     Dosage: 2 SPRAYS BID (137 MCG/SPRAY)
  7. WELLBUTRIN [Concomitant]
     Active Substance: BUPROPION HYDROCHLORIDE
     Indication: Depression
     Dosage: 150 MG, DAILY
  8. VITAMINS NOS [Concomitant]
     Active Substance: VITAMINS
  9. VITAMIN C [Concomitant]
     Active Substance: ASCORBIC ACID
  10. VITAMIN D NOS [Concomitant]
     Active Substance: CHOLECALCIFEROL\ERGOCALCIFEROL

REACTIONS (2)
  - Drug interaction [Recovered/Resolved]
  - Injection site bruising [Recovered/Resolved]

NARRATIVE: CASE EVENT DATE: 20240808
